FAERS Safety Report 24730296 (Version 1)
Quarter: 2024Q4

REPORT INFORMATION
  Report Type: Spontaneous
  Country: IL (occurrence: IL)
  Receive Date: 20241213
  Receipt Date: 20241213
  Transmission Date: 20250114
  Serious: Yes (Death, Other)
  Sender: GENMAB
  Company Number: IL-ABBVIE-6042938

PATIENT
  Age: 86 Year
  Sex: Male

DRUGS (1)
  1. EPCORITAMAB [Suspect]
     Active Substance: EPCORITAMAB
     Indication: Diffuse large B-cell lymphoma
     Dosage: 48 MILLIGRAM
     Route: 058
     Dates: start: 20241004

REACTIONS (3)
  - Death [Fatal]
  - Coronavirus infection [Unknown]
  - Lung disorder [Unknown]

NARRATIVE: CASE EVENT DATE: 20240101
